FAERS Safety Report 18262357 (Version 1)
Quarter: 2020Q3

REPORT INFORMATION
  Report Type: Report from Study
  Country: US (occurrence: US)
  Receive Date: 20200914
  Receipt Date: 20200914
  Transmission Date: 20201103
  Serious: Yes (Other)
  Sender: FDA-Public Use
  Company Number: US-PFIZER INC-2020349065

PATIENT

DRUGS (3)
  1. TETRACAINE. [Suspect]
     Active Substance: TETRACAINE
     Indication: APPENDICECTOMY
     Dosage: 36 MG
     Route: 008
  2. LIDOCAINE HCL [Suspect]
     Active Substance: LIDOCAINE HYDROCHLORIDE
     Indication: APPENDICECTOMY
     Dosage: 270 MG
     Route: 008
  3. EPINEPHRINE. [Suspect]
     Active Substance: EPINEPHRINE
     Indication: APPENDICECTOMY
     Dosage: UNK. (1:125000)
     Route: 008

REACTIONS (1)
  - Muscular weakness [Unknown]
